FAERS Safety Report 5412459-1 (Version None)
Quarter: 2007Q3

REPORT INFORMATION
  Report Type: 
  Country: None (occurrence: None)
  Receive Date: 20070813
  Receipt Date: 20070809
  Transmission Date: 20080115
  Serious: Yes (Death)
  Sender: FDA-Public Use
  Company Number: DE-BRISTOL-MYERS SQUIBB COMPANY-13874185

PATIENT
  Age: 66 Year
  Sex: Male

DRUGS (8)
  1. CETUXIMAB [Suspect]
     Indication: NON-SMALL CELL LUNG CANCER
     Route: 041
     Dates: start: 20070605, end: 20070605
  2. CARBOPLATIN [Suspect]
     Indication: NON-SMALL CELL LUNG CANCER
     Route: 042
     Dates: start: 20070605, end: 20070605
  3. GEMCITABINE HCL [Suspect]
     Indication: NON-SMALL CELL LUNG CANCER
     Route: 042
     Dates: start: 20070605, end: 20070605
  4. SIMVASTATIN [Concomitant]
     Indication: HYPERCHOLESTEROLAEMIA
  5. LEVOTHYROXINE SODIUM [Concomitant]
     Indication: HYPOTHYROIDISM
  6. ATENOLOL [Concomitant]
     Indication: HYPERTENSION
  7. AMLODIPINE [Concomitant]
     Indication: HYPERTENSION
  8. AMLODIPINE [Concomitant]

REACTIONS (1)
  - DEATH [None]
